FAERS Safety Report 25642653 (Version 3)
Quarter: 2025Q3

REPORT INFORMATION
  Report Type: Spontaneous
  Country: US (occurrence: US)
  Receive Date: 20250805
  Receipt Date: 20250901
  Transmission Date: 20251020
  Serious: No
  Sender: ABBVIE
  Company Number: US-ABBVIE-6398912

PATIENT
  Age: 18 Year
  Sex: Female

DRUGS (4)
  1. SAPHRIS [Suspect]
     Active Substance: ASENAPINE MALEATE
     Indication: Product used for unknown indication
     Route: 048
  2. SAPHRIS [Suspect]
     Active Substance: ASENAPINE MALEATE
     Indication: Product used for unknown indication
     Route: 048
     Dates: start: 2025
  3. SOTALOL [Suspect]
     Active Substance: SOTALOL
     Indication: Arrhythmia
     Route: 048
  4. SECUADO [Suspect]
     Active Substance: ASENAPINE
     Indication: Schizophrenia
     Route: 062

REACTIONS (8)
  - DiGeorge^s syndrome [Unknown]
  - Aggression [Recovering/Resolving]
  - Mood altered [Recovering/Resolving]
  - Drug ineffective [Unknown]
  - Learning disability [Unknown]
  - Thinking abnormal [Unknown]
  - Schizophrenia [Unknown]
  - Cardiac disorder [Unknown]
